FAERS Safety Report 7726089-X (Version None)
Quarter: 2011Q3

REPORT INFORMATION
  Report Type: 
  Country: None (occurrence: None)
  Receive Date: 20110902
  Receipt Date: 20110824
  Transmission Date: 20111222
  Serious: Yes (Hospitalization)
  Sender: FDA-Public Use
  Company Number: US-PURDUE-USA-2011-0074158

PATIENT
  Sex: Female

DRUGS (1)
  1. OXYCONTIN [Suspect]
     Indication: PAIN
     Dosage: 30 MG, BID
     Route: 048
     Dates: start: 20110201

REACTIONS (7)
  - HYPERTENSION [None]
  - RASH GENERALISED [None]
  - EYE IRRITATION [None]
  - RHINORRHOEA [None]
  - MALAISE [None]
  - HEART RATE INCREASED [None]
  - BLISTER [None]
